FAERS Safety Report 5441242-6 (Version None)
Quarter: 2007Q3

REPORT INFORMATION
  Report Type: 
  Country: None (occurrence: None)
  Receive Date: 20070901
  Receipt Date: 20070820
  Transmission Date: 20080115
  Serious: Yes (Other)
  Sender: FDA-Public Use
  Company Number: BR-PFIZER INC-2007070782

PATIENT
  Sex: Female
  Weight: 66 kg

DRUGS (3)
  1. CHAMPIX [Suspect]
     Indication: SMOKING CESSATION THERAPY
     Route: 048
  2. EUTHYROX [Concomitant]
     Indication: HYPOTHYROIDISM
     Route: 048
  3. CONTRACEPTIVE, UNSPECIFIED [Concomitant]

REACTIONS (4)
  - MALAISE [None]
  - NAUSEA [None]
  - SOMNOLENCE [None]
  - SUFFOCATION FEELING [None]
